FAERS Safety Report 15757995 (Version 1)
Quarter: 2018Q4

REPORT INFORMATION
  Report Type: Spontaneous
  Country: PL (occurrence: PL)
  Receive Date: 20181225
  Receipt Date: 20181225
  Transmission Date: 20190205
  Serious: Yes (Death, Other)
  Sender: FDA-Public Use
  Company Number: PL-ACCORD-097507

PATIENT
  Age: 75 Year
  Sex: Male

DRUGS (10)
  1. FENTANYL. [Suspect]
     Active Substance: FENTANYL
     Indication: PAIN
     Dosage: DOSAGE FORM: UNSPECIFIED
     Route: 062
  2. GABAPENTIN. [Suspect]
     Active Substance: GABAPENTIN
     Indication: PAIN
     Route: 065
  3. TRAMADOL. [Suspect]
     Active Substance: TRAMADOL
     Indication: PAIN
     Route: 065
  4. FENTANYL. [Suspect]
     Active Substance: FENTANYL
     Indication: PAIN
     Dosage: DOSAGE FORM: UNSPECIFIED
     Route: 062
  5. FENTANYL. [Suspect]
     Active Substance: FENTANYL
     Indication: PAIN
     Dosage: DOSAGE FORM: UNSPECIFIED
     Route: 062
  6. ZOLEDRONIC ACID [Suspect]
     Active Substance: ZOLEDRONIC ACID
     Indication: METASTASES TO BONE
     Route: 042
  7. MORPHINE [Suspect]
     Active Substance: MORPHINE
     Indication: PAIN
     Route: 065
  8. GABAPENTIN. [Suspect]
     Active Substance: GABAPENTIN
     Indication: PAIN
     Dosage: DOSAGE FORM: UNSPECIFIED
     Route: 065
  9. KETOPROFEN. [Suspect]
     Active Substance: KETOPROFEN
     Indication: PAIN
     Route: 065
  10. FENTANYL. [Suspect]
     Active Substance: FENTANYL
     Indication: PAIN
     Dosage: DOSAGE FORM: UNSPECIFIED
     Route: 062

REACTIONS (8)
  - Mobility decreased [Unknown]
  - Overdose [Unknown]
  - Pathological fracture [Unknown]
  - Metastases to lung [Unknown]
  - Sudden death [Fatal]
  - Peripheral swelling [Unknown]
  - Metastases to lymph nodes [Unknown]
  - Drug ineffective [Unknown]
